FAERS Safety Report 7045623-9 (Version None)
Quarter: 2010Q4

REPORT INFORMATION
  Report Type: 
  Country: None (occurrence: None)
  Receive Date: 20101014
  Receipt Date: 20101005
  Transmission Date: 20110411
  Serious: Yes (Other)
  Sender: FDA-Public Use
  Company Number: US-ASTRAZENECA-2010SE46824

PATIENT
  Age: 62 Year
  Sex: Male

DRUGS (8)
  1. SEROQUEL [Suspect]
     Indication: DEPRESSION
     Route: 048
     Dates: start: 20040101
  2. SEROQUEL [Suspect]
     Dosage: 200 MGS
     Route: 048
  3. SEROQUEL [Suspect]
     Route: 048
     Dates: end: 20100901
  4. SEROQUEL [Suspect]
     Route: 048
     Dates: start: 20100901
  5. REMERON [Concomitant]
  6. KLONOPIN [Concomitant]
  7. XANAX [Concomitant]
  8. OXYGEN [Concomitant]

REACTIONS (3)
  - INCORRECT DOSE ADMINISTERED [None]
  - INSOMNIA [None]
  - LUNG NEOPLASM MALIGNANT [None]
